FAERS Safety Report 24703910 (Version 3)
Quarter: 2025Q3

REPORT INFORMATION
  Report Type: Spontaneous
  Country: US (occurrence: US)
  Receive Date: 20241206
  Receipt Date: 20250806
  Transmission Date: 20251021
  Serious: No
  Sender: BIOGEN
  Company Number: US-BIOGEN-2024BI01292921

PATIENT
  Sex: Male

DRUGS (4)
  1. VUMERITY [Suspect]
     Active Substance: DIROXIMEL FUMARATE
     Indication: Multiple sclerosis
     Route: 050
     Dates: start: 20210514, end: 20250102
  2. VUMERITY [Suspect]
     Active Substance: DIROXIMEL FUMARATE
     Dosage: TAKE 2 CAPSULES (462 MG) BY MOUTH TWICE DAILY
     Route: 050
  3. AMMONIUM LACTATE [Concomitant]
     Active Substance: AMMONIUM LACTATE
     Route: 050
  4. VITAMIN D3 [Concomitant]
     Active Substance: CHOLECALCIFEROL
     Route: 050

REACTIONS (3)
  - Communication disorder [Unknown]
  - Mobility decreased [Unknown]
  - Balance disorder [Unknown]
